FAERS Safety Report 8093981-9 (Version None)
Quarter: 2012Q1

REPORT INFORMATION
  Report Type: 
  Country: None (occurrence: None)
  Receive Date: 20120130
  Receipt Date: 20120120
  Transmission Date: 20120608
  Serious: Yes (Hospitalization)
  Sender: FDA-Public Use
  Company Number: US-BAYER-2011-091303

PATIENT
  Age: 38 Year
  Sex: Female
  Weight: 83.447 kg

DRUGS (2)
  1. NAPROXEN (ALEVE) [Concomitant]
     Dosage: UNK
     Dates: start: 20040101, end: 20080101
  2. YAZ [Suspect]
     Dosage: UNK
     Dates: start: 20050101, end: 20060101

REACTIONS (3)
  - CHOLELITHIASIS [None]
  - GASTROINTESTINAL DISORDER [None]
  - PANCREATITIS [None]
